FAERS Safety Report 6791253-3 (Version None)
Quarter: 2010Q2

REPORT INFORMATION
  Report Type: 
  Country: None (occurrence: None)
  Receive Date: 20100624
  Receipt Date: 20100611
  Transmission Date: 20101027
  Serious: Yes (Hospitalization)
  Sender: FDA-Public Use
  Company Number: US-WATSON-2010-08301

PATIENT
  Age: 4 Year
  Sex: Male

DRUGS (3)
  1. CLONAZEPAM [Suspect]
     Indication: ACCIDENTAL DRUG INTAKE BY CHILD
     Dosage: UNK
     Route: 048
  2. FLUMAZENIL [Suspect]
     Indication: RESPIRATORY DEPRESSION
     Dosage: UNK
     Route: 065
  3. FLUMAZENIL [Suspect]
     Indication: DEPRESSED LEVEL OF CONSCIOUSNESS

REACTIONS (5)
  - ACCIDENTAL DRUG INTAKE BY CHILD [None]
  - ACCIDENTAL OVERDOSE [None]
  - ATRIOVENTRICULAR BLOCK FIRST DEGREE [None]
  - ATRIOVENTRICULAR BLOCK SECOND DEGREE [None]
  - LOSS OF CONSCIOUSNESS [None]
